FAERS Safety Report 6176582-9 (Version None)
Quarter: 2009Q2

REPORT INFORMATION
  Report Type: 
  Country: None (occurrence: None)
  Receive Date: 20090501
  Receipt Date: 20090424
  Transmission Date: 20091009
  Serious: Yes (Hospitalization)
  Sender: FDA-Public Use
  Company Number: US-ELI_LILLY_AND_COMPANY-US200904005813

PATIENT
  Sex: Female

DRUGS (9)
  1. BYETTA [Suspect]
     Indication: TYPE 2 DIABETES MELLITUS
     Dosage: 5 UG, 2/D
     Route: 058
     Dates: start: 20080101
  2. BYETTA [Suspect]
     Dosage: 10 UG, 2/D
     Route: 058
  3. MAXZIDE [Concomitant]
     Indication: BLOOD PRESSURE INCREASED
     Dosage: UNK, DAILY (1/D)
  4. LIPITOR [Concomitant]
     Indication: BLOOD CHOLESTEROL INCREASED
     Dosage: 20 MG, UNK
  5. LASIX [Concomitant]
     Indication: OEDEMA PERIPHERAL
     Dosage: 40 MG, AS NEEDED
  6. ACTOS [Concomitant]
     Indication: TYPE 2 DIABETES MELLITUS
  7. ASPIRIN [Concomitant]
     Dosage: 81 MG, UNK
  8. HUMULIN N [Concomitant]
     Indication: TYPE 2 DIABETES MELLITUS
     Dosage: 45 U, EACH MORNING
  9. HUMULIN N [Concomitant]
     Dosage: 15 U, EACH EVENING

REACTIONS (3)
  - BLOOD GLUCOSE DECREASED [None]
  - FALL [None]
  - UPPER LIMB FRACTURE [None]
